FAERS Safety Report 8018649-6 (Version None)
Quarter: 2012Q1

REPORT INFORMATION
  Report Type: 
  Country: None (occurrence: None)
  Receive Date: 20120103
  Receipt Date: 20111222
  Transmission Date: 20120608
  Serious: Yes (Other)
  Sender: FDA-Public Use
  Company Number: US-RB-032062-11

PATIENT
  Age: 64 Year
  Sex: Female

DRUGS (1)
  1. MUCINEX DM [Suspect]
     Indication: RESPIRATORY TRACT CONGESTION
     Route: 048

REACTIONS (4)
  - DIZZINESS [None]
  - ASTHENIA [None]
  - LOSS OF CONSCIOUSNESS [None]
  - HYPERHIDROSIS [None]
